FAERS Safety Report 4385862-9 (Version None)
Quarter: 2004Q2

REPORT INFORMATION
  Report Type: 
  Country: None (occurrence: None)
  Receive Date: 20040628
  Receipt Date: 20040616
  Transmission Date: 20050107
  Serious: Yes (Hospitalization)
  Sender: FDA-Public Use
  Company Number: FR-BRISTOL-MYERS SQUIBB COMPANY-12616991

PATIENT
  Age: 87 Year
  Sex: Male
  Weight: 69 kg

DRUGS (5)
  1. MUCOMYST PWDR OS 200 MG [Suspect]
     Indication: BRONCHITIS CHRONIC
     Dosage: 200MG/5ML POWDER FOR ORAL SUSPENSION (DAILY DOSE + START DATE UNSPECIFIED)
     Route: 048
     Dates: end: 20040206
  2. CORDARONE [Suspect]
     Dosage: 200MG TABLET
     Route: 048
     Dates: start: 20040116, end: 20040206
  3. IMOVANE [Concomitant]
  4. LENITRAL [Concomitant]
  5. TILDIEM [Concomitant]

REACTIONS (1)
  - NEUTROPENIA [None]
